FAERS Safety Report 8167404 (Version 2)
Quarter: 2014Q1

REPORT INFORMATION
  Report Type: Spontaneous
  Country: US (occurrence: US)
  Receive Date: 20111004
  Receipt Date: 20140314
  Transmission Date: 20141002
  Serious: Yes (Other)
  Sender: FDA-Public Use
  Company Number: US-BAYER-2011-092052

PATIENT
  Age: 22 Year
  Sex: Female
  Weight: 59 kg

DRUGS (13)
  1. OCELLA [Suspect]
     Dosage: UNK
     Dates: start: 200801, end: 200912
  2. OMEPRAZOLE [Concomitant]
     Dosage: 40 MG, UNK
  3. PROMETHAZINE [Concomitant]
     Dosage: 1.25 MG, UNK
  4. AVELOX [Concomitant]
     Dosage: 400 MG, UNK
  5. BUDEPRION [Concomitant]
     Dosage: 150 MG, UNK
  6. CITALOPRAM [Concomitant]
     Dosage: 20 MG, UNK
  7. CELEXA [Concomitant]
  8. FLONASE [Concomitant]
  9. WELLBUTRIN [Concomitant]
  10. MULTIVITAMINS [Concomitant]
  11. VICODIN [Concomitant]
  12. PHENERGAN [Concomitant]
  13. LOESTRIN [Concomitant]

REACTIONS (4)
  - Cholecystectomy [None]
  - Mental disorder [None]
  - Depression [None]
  - Cholecystitis chronic [None]
